FAERS Safety Report 23847919 (Version 1)
Quarter: 2024Q2

REPORT INFORMATION
  Report Type: Spontaneous
  Country: US (occurrence: None)
  Receive Date: 20240510
  Receipt Date: 20240510
  Transmission Date: 20240715
  Serious: Yes (Hospitalization)
  Sender: FDA-Public Use
  Company Number: None

PATIENT
  Age: 73 Year
  Sex: Male
  Weight: 113 kg

DRUGS (1)
  1. CEFTRIAXONE SODIUM [Suspect]
     Active Substance: CEFTRIAXONE SODIUM
     Indication: Urinary tract infection
     Dosage: FREQUENCY : ONCE;?
     Route: 042
     Dates: start: 20220511, end: 20220511

REACTIONS (4)
  - Anaphylactic reaction [None]
  - Multiple organ dysfunction syndrome [None]
  - Haemophagocytic lymphohistiocytosis [None]
  - Sepsis [None]

NARRATIVE: CASE EVENT DATE: 20220511
